FAERS Safety Report 17275010 (Version 2)
Quarter: 2020Q1

REPORT INFORMATION
  Report Type: Report from Study
  Country: FI (occurrence: FI)
  Receive Date: 20200116
  Receipt Date: 20200127
  Transmission Date: 20200409
  Serious: Yes (Death, Hospitalization, Other)
  Sender: FDA-Public Use
  Company Number: FI-AMGEN-FINNI2018187751

PATIENT
  Age: 85 Year
  Sex: Male

DRUGS (3)
  1. DENOSUMAB [Suspect]
     Active Substance: DENOSUMAB
     Indication: METASTASES TO BONE
     Dosage: 120 MILLIGRAM, Q4WK
     Route: 058
     Dates: start: 20110112, end: 20131108
  2. ZOLADEX [Concomitant]
     Active Substance: GOSERELIN ACETATE
     Dosage: UNK
     Dates: start: 20040517, end: 2018
  3. PROFENID [Concomitant]
     Active Substance: KETOPROFEN
     Dosage: UNK
     Dates: start: 20070507, end: 201108

REACTIONS (2)
  - Osteonecrosis of jaw [Unknown]
  - Prostate cancer [Fatal]

NARRATIVE: CASE EVENT DATE: 20140317
